FAERS Safety Report 7238902-3 (Version None)
Quarter: 2011Q1

REPORT INFORMATION
  Report Type: 
  Country: None (occurrence: None)
  Receive Date: 20110121
  Receipt Date: 20110118
  Transmission Date: 20110831
  Serious: Yes (Death, Hospitalization, Other)
  Sender: FDA-Public Use
  Company Number: PHEH2006US10879

PATIENT
  Sex: Male
  Weight: 83.9 kg

DRUGS (48)
  1. ZOMETA [Suspect]
     Dosage: UNK
     Dates: end: 20060101
  2. EFFEXOR [Concomitant]
  3. RADIATION [Concomitant]
  4. MYLANTA [Concomitant]
     Indication: DYSPEPSIA
     Dosage: 30 CC
     Route: 048
  5. LOPRESSOR [Concomitant]
     Dosage: 25 MG, BID
  6. PLAVIX [Concomitant]
     Dosage: 75 MG, BIW
     Route: 048
  7. CASODEX [Concomitant]
  8. EMPIRIN [Concomitant]
     Dosage: EVERY 3 HRS AR NEEDED
  9. BENADRYL [Concomitant]
     Dosage: 50 MG
     Route: 048
  10. KETOROLAC TROMETHAMINE [Concomitant]
     Dosage: 15 MG/0.5 ML
     Route: 042
  11. FAMOTIDINE [Concomitant]
     Dosage: 20 MG, UNK
  12. ELIGARD [Concomitant]
  13. OXYCODONE [Concomitant]
  14. DEMEROL [Concomitant]
     Dosage: 75 MG, UNK
  15. NUBAIN [Concomitant]
     Dosage: 5 MG, UNK
     Route: 042
  16. TYLOX [Concomitant]
     Indication: PAIN
     Dosage: UNK
  17. IMDUR [Concomitant]
     Dosage: 30 MG, QD
  18. ATIVAN [Concomitant]
  19. ELDERTONIC [Concomitant]
  20. TRIAMTERENE AND HYDROCHLOROTHIAZID ^HARRIS^ [Concomitant]
  21. VALIUM [Concomitant]
     Indication: NERVOUSNESS
     Dosage: 5-10 MG, EVERY 6 HRS AS NEEDED
     Route: 048
  22. NITROGLYCERIN [Concomitant]
     Dosage: 1 INCH TO CHEST WALL EVERY 6 HRS
  23. PEPCID [Concomitant]
     Dosage: 20 MG, BID
     Route: 048
  24. LIPITOR [Concomitant]
  25. OXYCONTIN [Concomitant]
  26. ENOXAPARIN [Concomitant]
     Dosage: 1 MG/KG
     Route: 058
  27. DIAZEPAM [Concomitant]
     Dosage: 5 MG, UNK
  28. FLOMAX [Concomitant]
  29. PHENERGAN [Concomitant]
     Indication: PAIN
     Dosage: 25 MG, Q3H, AS NEEDED
     Route: 030
  30. NEXIUM [Concomitant]
  31. THIAZIDE DERIVATIVES [Concomitant]
  32. CALCIUM CHLORIDE [Concomitant]
  33. ASPIRIN [Concomitant]
     Dosage: 325 MG, QD
     Route: 048
  34. PRILOSEC [Concomitant]
  35. RESTORIL [Concomitant]
  36. ATROPINE [Concomitant]
     Dosage: 0.8 MG
  37. REOPRO [Concomitant]
     Dosage: UNK
     Route: 042
  38. METHADONE [Concomitant]
     Dosage: 5 MG, BID
  39. METOPROLOL [Concomitant]
     Dosage: 50 MG, UNK
  40. TEMAZEPAM [Concomitant]
     Dosage: 15 MG, UNK
  41. ALPRAZOLAM [Concomitant]
  42. K-DUR [Concomitant]
  43. NITROGLYCERIN [Concomitant]
     Dosage: UNK
     Route: 042
  44. PROZAC [Concomitant]
  45. SENOKOT [Concomitant]
  46. TRILISATE [Concomitant]
  47. QUADRAMET [Concomitant]
  48. HEPARIN [Concomitant]
     Dosage: 25000/250 CC
     Route: 042

REACTIONS (37)
  - DEATH [None]
  - PNEUMONIA [None]
  - RETROPERITONEAL LYMPHADENOPATHY [None]
  - PYREXIA [None]
  - OSTEONECROSIS OF JAW [None]
  - BONE DISORDER [None]
  - LETHARGY [None]
  - MUSCULOSKELETAL PAIN [None]
  - SPUTUM DISCOLOURED [None]
  - PANCREATIC ATROPHY [None]
  - DIVERTICULUM INTESTINAL [None]
  - AORTIC DISORDER [None]
  - PENILE OEDEMA [None]
  - INJURY [None]
  - INSOMNIA [None]
  - COUGH [None]
  - LYMPHADENOPATHY [None]
  - PAIN [None]
  - ANXIETY [None]
  - URETERIC OBSTRUCTION [None]
  - GINGIVAL ATROPHY [None]
  - HYDRONEPHROSIS [None]
  - HYPOTENSION [None]
  - SEPSIS [None]
  - RENAL FAILURE CHRONIC [None]
  - ORTHOSTATIC HYPOTENSION [None]
  - DISORIENTATION [None]
  - FIBROSIS [None]
  - DEHYDRATION [None]
  - BACTERIAL INFECTION [None]
  - TOOTHACHE [None]
  - BLADDER OBSTRUCTION [None]
  - METASTASES TO BONE [None]
  - ARTHRALGIA [None]
  - URINARY TRACT INFECTION [None]
  - VOMITING [None]
  - COLONIC POLYP [None]
